FAERS Safety Report 4413499-1 (Version None)
Quarter: 2004Q2

REPORT INFORMATION
  Report Type: 
  Country: None (occurrence: None)
  Receive Date: 20040630
  Receipt Date: 20040325
  Transmission Date: 20050107
  Serious: No
  Sender: FDA-Public Use
  Company Number: 04P-163-0254650-00

PATIENT
  Age: 69 Year
  Sex: Female

DRUGS (14)
  1. HUMIRA [Suspect]
     Indication: RHEUMATOID ARTHRITIS
     Dosage: 40 MG, 1 IN 2 WK, SUBCUTANEOUS
     Route: 058
     Dates: start: 20040319
  2. FOLIC ACID [Concomitant]
  3. METHOTREXATE SODIUM [Concomitant]
  4. PREDNISONE TAB [Concomitant]
  5. DILTIAZEM [Concomitant]
  6. ACTOS [Concomitant]
  7. GLYBURIDE [Concomitant]
  8. LEVOTHYROXINE SODIUM [Concomitant]
  9. ATORVASTATIN CALCIUM [Concomitant]
  10. METOPROLOL [Concomitant]
  11. ALLOPURINOL [Concomitant]
  12. MULTI-VITAMINS [Concomitant]
  13. CALCIUM [Concomitant]
  14. TOCOPHEROL CONCENTRATE CAP [Concomitant]

REACTIONS (1)
  - INJECTION SITE BURNING [None]
